FAERS Safety Report 24651941 (Version 1)
Quarter: 2024Q4

REPORT INFORMATION
  Report Type: Spontaneous
  Country: JP (occurrence: JP)
  Receive Date: 20241122
  Receipt Date: 20241122
  Transmission Date: 20250114
  Serious: Yes (Hospitalization)
  Sender: NOVITIUM PHARMA
  Company Number: JP-NOVITIUMPHARMA-2024JPNVP02617

PATIENT
  Age: 68 Year
  Sex: Male
  Weight: 55.5 kg

DRUGS (13)
  1. VALSARTAN [Suspect]
     Active Substance: VALSARTAN
     Indication: Atrial fibrillation
     Route: 048
  2. Edoxaban [Lixiana] [Concomitant]
     Indication: Thrombosis prophylaxis
     Route: 048
  3. Edoxaban [Lixiana] [Concomitant]
  4. CLARITHROMYCIN [Concomitant]
     Active Substance: CLARITHROMYCIN
     Route: 048
  5. RIFAMPIN [Concomitant]
     Active Substance: RIFAMPIN
  6. ETHAMBUTOL [Concomitant]
     Active Substance: ETHAMBUTOL HYDROCHLORIDE
  7. BISOPROLOL [Concomitant]
     Active Substance: BISOPROLOL
     Indication: Atrial fibrillation
  8. FENOFIBRATE [Concomitant]
     Active Substance: FENOFIBRATE
     Indication: Product used for unknown indication
  9. NIFEDIPINE [Concomitant]
     Active Substance: NIFEDIPINE
     Indication: Product used for unknown indication
  10. TEPRENONE [Concomitant]
     Active Substance: TEPRENONE
     Indication: Product used for unknown indication
  11. LANSOPRAZOLE [Concomitant]
     Active Substance: LANSOPRAZOLE
     Indication: Product used for unknown indication
  12. PANCRELIPASE [Concomitant]
     Active Substance: PANCRELIPASE
     Indication: Pancreatic carcinoma
  13. ACOTIAMIDE [Concomitant]
     Active Substance: ACOTIAMIDE
     Indication: Product used for unknown indication

REACTIONS (2)
  - Drug level increased [Recovered/Resolved]
  - Drug interaction [Recovered/Resolved]
